FAERS Safety Report 10225489 (Version 1)
Quarter: 2014Q1

REPORT INFORMATION
  Report Type: Spontaneous
  Country: US (occurrence: None)
  Receive Date: 20140306
  Receipt Date: 20140306
  Transmission Date: 20141002
  Serious: Yes (Other)
  Sender: FDA-Public Use
  Company Number: 163-21880-13082541

PATIENT
  Age: 72 Year
  Sex: Female
  Weight: 58.51 kg

DRUGS (5)
  1. REVLIMID [Suspect]
     Indication: PLASMA CELL MYELOMA
     Route: 048
     Dates: start: 20130517, end: 20130803
  2. DEXAMETHASONE (DEXAMETHASONE) [Concomitant]
  3. LORAZEPAM (LORAZEPAM) [Concomitant]
  4. VERAPAMIL HCL (VERAPAMIL HYDROCHLORIDE) [Concomitant]
  5. ASPIRIN (ACETYLSALICYLIC ACID) [Concomitant]

REACTIONS (3)
  - Seasonal allergy [None]
  - Rash [None]
  - Oropharyngeal pain [None]
